FAERS Safety Report 8486115 (Version 7)
Quarter: 2015Q4

REPORT INFORMATION
  Report Type: Spontaneous
  Country: ES (occurrence: ES)
  Receive Date: 20120402
  Receipt Date: 20151123
  Transmission Date: 20160305
  Serious: Yes (Death, Hospitalization, Disabling)
  Sender: FDA-Public Use
  Company Number: ES-BIOGENIDEC-2012BI009353

PATIENT
  Sex: Female

DRUGS (1)
  1. TYSABRI [Suspect]
     Active Substance: NATALIZUMAB
     Indication: MULTIPLE SCLEROSIS
     Route: 042
     Dates: end: 20120130

REACTIONS (2)
  - Immune reconstitution inflammatory syndrome [Fatal]
  - Progressive multifocal leukoencephalopathy [Fatal]
